FAERS Safety Report 15431182 (Version 1)
Quarter: 2018Q3

REPORT INFORMATION
  Report Type: Spontaneous
  Country: SG (occurrence: SG)
  Receive Date: 20180926
  Receipt Date: 20180926
  Transmission Date: 20181010
  Serious: Yes (Other)
  Sender: FDA-Public Use
  Company Number: SG-BECTON DICKINSON-2018BDN00323

PATIENT
  Age: 61 Year
  Sex: Male

DRUGS (2)
  1. CHLORHEXIDINE [Suspect]
     Active Substance: CHLORHEXIDINE
     Indication: ANTIBIOTIC PROPHYLAXIS
     Route: 048
  2. CHLORHEXIDINE [Suspect]
     Active Substance: CHLORHEXIDINE
     Dosage: UNK
     Route: 065

REACTIONS (1)
  - Anaphylactic reaction [Recovered/Resolved]
